FAERS Safety Report 7357697-6 (Version None)
Quarter: 2011Q1

REPORT INFORMATION
  Report Type: 
  Country: None (occurrence: None)
  Receive Date: 20110317
  Receipt Date: 20110307
  Transmission Date: 20110831
  Serious: Yes (Other)
  Sender: FDA-Public Use
  Company Number: US-MYLANLABS-2011S1002256

PATIENT
  Age: 49 Year
  Sex: Female
  Weight: 68.95 kg

DRUGS (8)
  1. LEVOTHYROXINE [Concomitant]
     Indication: HYPOTHYROIDISM
  2. TEGRETOL [Concomitant]
  3. CRESTOR [Concomitant]
  4. ESTRADIOL [Suspect]
     Indication: HORMONE REPLACEMENT THERAPY
     Dosage: CHANGED QW
     Route: 062
     Dates: start: 20101230
  5. ESTRADIOL [Suspect]
     Indication: HYSTERECTOMY
     Dosage: CHANGED QW
     Route: 062
     Dates: start: 20101230
  6. XANAX [Concomitant]
  7. EPITOL [Concomitant]
     Dates: start: 20100101
  8. MOBIC [Concomitant]

REACTIONS (7)
  - APPLICATION SITE RASH [None]
  - THINKING ABNORMAL [None]
  - SUICIDAL IDEATION [None]
  - DISTURBANCE IN ATTENTION [None]
  - TREMOR [None]
  - DRUG INEFFECTIVE [None]
  - APPLICATION SITE ERYTHEMA [None]
